FAERS Safety Report 25216657 (Version 1)
Quarter: 2025Q2

REPORT INFORMATION
  Report Type: Spontaneous
  Country: US (occurrence: US)
  Receive Date: 20250419
  Receipt Date: 20250419
  Transmission Date: 20250717
  Serious: Yes (Other)
  Sender: AMGEN
  Company Number: US-AMGEN-USASP2025075800

PATIENT

DRUGS (7)
  1. ADALIMUMAB [Suspect]
     Active Substance: ADALIMUMAB
     Indication: Inflammatory bowel disease
     Route: 065
  2. INFLIXIMAB [Suspect]
     Active Substance: INFLIXIMAB
     Indication: Inflammatory bowel disease
     Route: 065
  3. GOLIMUMAB [Concomitant]
     Active Substance: GOLIMUMAB
  4. NATALIZUMAB [Concomitant]
     Active Substance: NATALIZUMAB
  5. CERTOLIZUMAB [Concomitant]
     Active Substance: CERTOLIZUMAB
  6. RISANKIZUMAB [Concomitant]
     Active Substance: RISANKIZUMAB
  7. USTEKINUMAB [Concomitant]
     Active Substance: USTEKINUMAB

REACTIONS (10)
  - Cholangitis sclerosing [Unknown]
  - Ankylosing spondylitis [Unknown]
  - Pyoderma gangrenosum [Unknown]
  - Secondary amyloidosis [Unknown]
  - Glomerular vascular disorder [Unknown]
  - Bronchiectasis [Unknown]
  - Interstitial lung disease [Unknown]
  - Erythema nodosum [Unknown]
  - Arthritis enteropathic [Unknown]
  - Episcleritis [Unknown]
